FAERS Safety Report 23076087 (Version 2)
Quarter: 2023Q4

REPORT INFORMATION
  Report Type: Spontaneous
  Country: US (occurrence: US)
  Receive Date: 20231017
  Receipt Date: 20231108
  Transmission Date: 20240110
  Serious: Yes (Other)
  Sender: FDA-Public Use
  Company Number: US-INTRA-CELLULAR THERAPIES, INC.-2023ICT01429

PATIENT
  Sex: Female
  Weight: 72.562 kg

DRUGS (1)
  1. CAPLYTA [Suspect]
     Active Substance: LUMATEPERONE
     Indication: Mood swings
     Dosage: 42 MG, 1X/DAY
     Route: 048
     Dates: start: 20230509, end: 20230525

REACTIONS (3)
  - Palpitations [Recovered/Resolved]
  - Cardiomegaly [Recovered/Resolved]
  - Off label use [Recovered/Resolved]

NARRATIVE: CASE EVENT DATE: 20230101
